FAERS Safety Report 4449750-1 (Version None)
Quarter: 2004Q3

REPORT INFORMATION
  Report Type: 
  Country: None (occurrence: None)
  Receive Date: 20040913
  Receipt Date: 20040831
  Transmission Date: 20050211
  Serious: Yes (Other)
  Sender: FDA-Public Use
  Company Number: K200401346

PATIENT
  Age: 45 Year
  Sex: Female
  Weight: 81.6 kg

DRUGS (7)
  1. CYTOMEL [Suspect]
     Indication: HYPOTHYROIDISM
     Dosage: UNK, UNK, UNK;  5 MG, TID, ORAL
     Dates: start: 19700101, end: 19740101
  2. CYTOMEL [Suspect]
     Indication: HYPOTHYROIDISM
     Dosage: UNK, UNK, UNK;  5 MG, TID, ORAL
     Dates: start: 19950101
  3. FOSAMAX [Concomitant]
  4. WELLBUTRIN [Concomitant]
  5. ALOE VERA [Concomitant]
  6. INTERFERON (INTERFERON) [Concomitant]
  7. GUAIFENESIN [Concomitant]

REACTIONS (14)
  - ABDOMINAL PAIN [None]
  - ANAL SPHINCTER ATONY [None]
  - AUTOIMMUNE DISORDER [None]
  - CHILLS [None]
  - COLITIS ULCERATIVE [None]
  - DEPRESSION [None]
  - DIARRHOEA HAEMORRHAGIC [None]
  - FOOD AVERSION [None]
  - INFLUENZA [None]
  - IRRITABLE BOWEL SYNDROME [None]
  - MENINGITIS [None]
  - MULTIPLE SCLEROSIS [None]
  - NAUSEA [None]
  - WEIGHT DECREASED [None]
